FAERS Safety Report 18015452 (Version 1)
Quarter: 2020Q3

REPORT INFORMATION
  Report Type: Spontaneous
  Country: US (occurrence: US)
  Receive Date: 20200713
  Receipt Date: 20200713
  Transmission Date: 20201103
  Serious: No
  Sender: FDA-Public Use
  Company Number: US-BAYER-2020-139414

PATIENT
  Sex: Female

DRUGS (2)
  1. XYZAL [Concomitant]
     Active Substance: LEVOCETIRIZINE DIHYDROCHLORIDE
  2. CLARITIN [Suspect]
     Active Substance: LORATADINE
     Indication: SINUSITIS

REACTIONS (2)
  - Weight increased [Unknown]
  - Product use in unapproved indication [Unknown]
